FAERS Safety Report 9334522 (Version 1)
Quarter: 2013Q2

REPORT INFORMATION
  Report Type: Spontaneous
  Country: US (occurrence: US)
  Receive Date: 20130606
  Receipt Date: 20130606
  Transmission Date: 20140414
  Serious: No
  Sender: FDA-Public Use
  Company Number: US-AMGEN-USASP2013014126

PATIENT
  Sex: Female

DRUGS (3)
  1. PROLIA [Suspect]
     Indication: CUSHING^S SYNDROME
     Dosage: UNK
     Dates: start: 201301
  2. PROLIA [Suspect]
     Indication: OSTEOGENESIS IMPERFECTA
  3. TAMOXIFEN [Suspect]
     Indication: PRODUCT USED FOR UNKNOWN INDICATION

REACTIONS (2)
  - Musculoskeletal discomfort [Unknown]
  - Malaise [Unknown]
